FAERS Safety Report 10286504 (Version 4)
Quarter: 2014Q3

REPORT INFORMATION
  Report Type: Spontaneous
  Country: JP (occurrence: JP)
  Receive Date: 20140709
  Receipt Date: 20140822
  Transmission Date: 20150326
  Serious: Yes (Hospitalization)
  Sender: FDA-Public Use
  Company Number: JP-JNJFOC-20140700177

PATIENT
  Age: 7 Decade
  Sex: Female

DRUGS (5)
  1. LIMAS [Concomitant]
     Active Substance: LITHIUM CARBONATE
     Indication: ANXIETY
     Route: 048
  2. BENZALIN [Concomitant]
     Active Substance: NITRAZEPAM
     Indication: INSOMNIA
     Route: 048
  3. TASMOLIN [Concomitant]
     Active Substance: BIPERIDEN
     Indication: GASTRIC ULCER
     Route: 048
  4. DORAL [Concomitant]
     Active Substance: QUAZEPAM
     Indication: INSOMNIA
     Route: 048
  5. RISPERDAL [Suspect]
     Active Substance: RISPERIDONE
     Indication: SCHIZOPHRENIA
     Route: 048
     Dates: end: 20140626

REACTIONS (3)
  - Volvulus [Recovered/Resolved]
  - Portal venous gas [Recovered/Resolved]
  - Gastrointestinal necrosis [Recovered/Resolved]

NARRATIVE: CASE EVENT DATE: 20140627
